FAERS Safety Report 24333919 (Version 1)
Quarter: 2024Q3

REPORT INFORMATION
  Report Type: Spontaneous
  Country: US (occurrence: US)
  Receive Date: 20240918
  Receipt Date: 20240918
  Transmission Date: 20241017
  Serious: No
  Sender: SANOFI AVENTIS
  Company Number: US-SA-2024SA268723

PATIENT
  Age: 77 Year
  Sex: Female

DRUGS (3)
  1. KEVZARA [Suspect]
     Active Substance: SARILUMAB
     Indication: Osteoporosis
     Dosage: 200 MG, QOW
     Route: 058
     Dates: start: 202404
  2. PREDNISONE [Suspect]
     Active Substance: PREDNISONE
     Dosage: 2 MG
  3. PREDNISONE [Suspect]
     Active Substance: PREDNISONE
     Dosage: 2 MG
     Dates: start: 2024

REACTIONS (3)
  - Osteoporosis [Unknown]
  - Condition aggravated [Unknown]
  - Product use in unapproved indication [Unknown]

NARRATIVE: CASE EVENT DATE: 20240401
